FAERS Safety Report 23251494 (Version 1)
Quarter: 2023Q4

REPORT INFORMATION
  Report Type: Spontaneous
  Country: BR (occurrence: BR)
  Receive Date: 20231201
  Receipt Date: 20231201
  Transmission Date: 20240109
  Serious: Yes (Other)
  Sender: FDA-Public Use
  Company Number: BR-AMERICAN REGENT INC-2023002773

PATIENT
  Age: 20 Year
  Sex: Female

DRUGS (1)
  1. VENOFER [Suspect]
     Active Substance: IRON SUCROSE
     Indication: Product used for unknown indication
     Dosage: UNK

REACTIONS (7)
  - Laryngeal oedema [Unknown]
  - Anaphylactic shock [Unknown]
  - Syncope [Unknown]
  - Dermatitis allergic [Unknown]
  - Back pain [Unknown]
  - Nausea [Unknown]
  - Vomiting [Unknown]
